FAERS Safety Report 10460182 (Version 1)
Quarter: 2014Q3

REPORT INFORMATION
  Report Type: Spontaneous
  Country: JP (occurrence: JP)
  Receive Date: 20140917
  Receipt Date: 20140917
  Transmission Date: 20150326
  Serious: Yes (Other)
  Sender: FDA-Public Use
  Company Number: JP-ABBVIE-14P-087-1285295-00

PATIENT
  Age: 92 Year
  Sex: Male

DRUGS (2)
  1. EPOGIN [Concomitant]
     Indication: PRODUCT USED FOR UNKNOWN INDICATION
  2. LEUPLIN SR FOR INJECTION KIT 11.25 [Suspect]
     Active Substance: LEUPROLIDE ACETATE
     Indication: PROSTATE CANCER
     Route: 058

REACTIONS (8)
  - Musculoskeletal stiffness [Unknown]
  - Low density lipoprotein increased [Unknown]
  - Blood uric acid increased [Unknown]
  - Musculoskeletal pain [Unknown]
  - Blood urea increased [Unknown]
  - Arthralgia [Unknown]
  - Blood pressure increased [Unknown]
  - Abasia [Unknown]
